FAERS Safety Report 7948140-4 (Version None)
Quarter: 2011Q4

REPORT INFORMATION
  Report Type: 
  Country: None (occurrence: None)
  Receive Date: 20111125
  Receipt Date: 20111108
  Transmission Date: 20120403
  Serious: Yes (Death)
  Sender: FDA-Public Use
  Company Number: FK201102662

PATIENT
  Age: 15 Month
  Sex: Male

DRUGS (6)
  1. METHOTREXATE [Suspect]
     Indication: BRAIN NEOPLASM MALIGNANT
  2. ETOPOSIDE [Suspect]
     Indication: BRAIN NEOPLASM MALIGNANT
  3. CARBOPLATIN [Suspect]
     Indication: BRAIN NEOPLASM MALIGNANT
  4. THIOTEPA [Suspect]
     Indication: BRAIN NEOPLASM MALIGNANT
  5. CISPLATIN [Suspect]
     Indication: BRAIN NEOPLASM MALIGNANT
  6. CYCLOPHOSPHAMIDE [Suspect]
     Indication: BRAIN NEOPLASM MALIGNANT

REACTIONS (1)
  - LEUKOENCEPHALOPATHY [None]
